FAERS Safety Report 24266466 (Version 7)
Quarter: 2024Q4

REPORT INFORMATION
  Report Type: Report from Study
  Country: CO (occurrence: CO)
  Receive Date: 20240830
  Receipt Date: 20241223
  Transmission Date: 20250115
  Serious: Yes (Death, Hospitalization, Other)
  Sender: TAKEDA
  Company Number: CO-TAKEDA-2024TUS071514

PATIENT
  Age: 66 Year
  Sex: Female
  Weight: 57 kg

DRUGS (1)
  1. VEDOLIZUMAB [Suspect]
     Active Substance: VEDOLIZUMAB
     Indication: Crohn^s disease
     Dosage: 300 MILLIGRAM

REACTIONS (21)
  - Death [Fatal]
  - Hypovolaemic shock [Unknown]
  - Haematochezia [Not Recovered/Not Resolved]
  - Gastric ulcer haemorrhage [Unknown]
  - Haemoglobin decreased [Unknown]
  - Myalgia [Unknown]
  - Bone pain [Unknown]
  - Gastrointestinal inflammation [Unknown]
  - Neck mass [Unknown]
  - Headache [Unknown]
  - Pyrexia [Unknown]
  - Weight decreased [Unknown]
  - Malaise [Not Recovered/Not Resolved]
  - Faeces discoloured [Not Recovered/Not Resolved]
  - Vascular access site haematoma [Unknown]
  - Vascular access site pain [Unknown]
  - Abdominal pain [Not Recovered/Not Resolved]
  - Flatulence [Recovered/Resolved]
  - Chills [Recovered/Resolved]
  - Arthralgia [Recovered/Resolved]
  - Fatigue [Recovered/Resolved]

NARRATIVE: CASE EVENT DATE: 20240626
